FAERS Safety Report 20796515 (Version 1)
Quarter: 2022Q2

REPORT INFORMATION
  Report Type: Spontaneous
  Country: ES (occurrence: ES)
  Receive Date: 20220506
  Receipt Date: 20220506
  Transmission Date: 20220720
  Serious: Yes (Life-Threatening, Hospitalization, Other)
  Sender: FDA-Public Use
  Company Number: None

PATIENT
  Age: 69 Year
  Sex: Male

DRUGS (1)
  1. OPDIVO [Suspect]
     Active Substance: NIVOLUMAB
     Indication: Malignant melanoma
     Dosage: 480 MG IV 1ODIS CADA 21 DIAS
     Route: 042
     Dates: start: 20211217, end: 20211217

REACTIONS (1)
  - Autoimmune myocarditis [Unknown]

NARRATIVE: CASE EVENT DATE: 20220118
